FAERS Safety Report 25319974 (Version 3)
Quarter: 2025Q2

REPORT INFORMATION
  Report Type: Spontaneous
  Country: JP (occurrence: JP)
  Receive Date: 20250515
  Receipt Date: 20250620
  Transmission Date: 20250717
  Serious: No
  Sender: UCB
  Company Number: JP-UCBJ-CD202506304UCBPHAPROD

PATIENT
  Age: 73 Year
  Sex: Male

DRUGS (1)
  1. VIMPAT [Suspect]
     Active Substance: LACOSAMIDE
     Indication: Epilepsy
     Dosage: 50 MILLIGRAM, 2X/DAY (BID)
     Route: 048
     Dates: start: 202504

REACTIONS (2)
  - Blood sodium decreased [Not Recovered/Not Resolved]
  - Rehabilitation therapy [Unknown]

NARRATIVE: CASE EVENT DATE: 20250509
